FAERS Safety Report 7323578-7 (Version None)
Quarter: 2011Q1

REPORT INFORMATION
  Report Type: 
  Country: None (occurrence: None)
  Receive Date: 20110301
  Receipt Date: 20110223
  Transmission Date: 20110831
  Serious: Yes (Hospitalization)
  Sender: FDA-Public Use
  Company Number: CO-ROCHE-761597

PATIENT
  Sex: Female

DRUGS (2)
  1. TACROLIMUS [Concomitant]
     Indication: IMMUNOSUPPRESSION
     Dosage: INDICATION: INMUNOSUPRESSION. FREQUENCY: QD
     Route: 048
  2. CELLCEPT [Suspect]
     Dosage: FREQUENCY: QD
     Route: 048
     Dates: start: 20100205

REACTIONS (1)
  - TRANSPLANT REJECTION [None]
